FAERS Safety Report 8346723-3 (Version None)
Quarter: 2012Q2

REPORT INFORMATION
  Report Type: 
  Country: None (occurrence: None)
  Receive Date: 20120508
  Receipt Date: 20120508
  Transmission Date: 20120825
  Serious: Yes (Other)
  Sender: FDA-Public Use
  Company Number: None

PATIENT
  Age: 42 Year
  Sex: Female
  Weight: 51 kg

DRUGS (20)
  1. NTG RAPID WRINKLE REPAIR NIGHT MOIST [Suspect]
     Indication: SKIN WRINKLING
     Dosage: DIME SIZE,1X DAILY, TOPICAL
     Route: 061
     Dates: end: 20120421
  2. METHIMAZOLE [Concomitant]
  3. HYDROCODONE BITARTRATE [Concomitant]
  4. AMBIEN [Concomitant]
  5. CYCLOBENZAPRINE [Concomitant]
  6. TOPAMAX [Concomitant]
  7. SEROQUEL [Concomitant]
  8. LIDOCAINE [Concomitant]
  9. MULTI-VITAMINS [Concomitant]
  10. ASCORBIC ACID [Concomitant]
  11. CLONAZEPAM [Concomitant]
  12. IRON [Concomitant]
  13. LAMOTRIGINE [Concomitant]
  14. ACYCLOVIR [Concomitant]
  15. NTG RAPID WRINKLE REPAIR NIGHT MOIST [Suspect]
     Indication: SKIN WRINKLING
     Dosage: DIME SIZE, 1X NIGHTLY, TOPICAL
     Route: 061
     Dates: end: 20120421
  16. VITAMIN B-12 [Concomitant]
  17. BACLOFEN [Concomitant]
  18. FENTANYL CITRATE [Concomitant]
  19. BIOTENE [Concomitant]
  20. OMEPRAZOLE [Concomitant]

REACTIONS (4)
  - ERYTHEMA [None]
  - SWELLING [None]
  - RASH MACULAR [None]
  - SKIN BURNING SENSATION [None]
